FAERS Safety Report 23831718 (Version 1)
Quarter: 2024Q2

REPORT INFORMATION
  Report Type: Spontaneous
  Country: PT (occurrence: PT)
  Receive Date: 20240508
  Receipt Date: 20240508
  Transmission Date: 20240716
  Serious: Yes (Other)
  Sender: FDA-Public Use
  Company Number: None

PATIENT
  Age: 30 Year
  Sex: Female

DRUGS (1)
  1. KETOROLAC [Suspect]
     Active Substance: KETOROLAC TROMETHAMINE
     Indication: Product used for unknown indication
     Dosage: (DOSAGE TEXT: 30 MG/ML) (PHARMACEUTICAL FORM (DOSAGE FORM): SOLUTION FOR INJECTION) 30 MG/ML AT AN U
     Route: 042

REACTIONS (2)
  - Circumoral oedema [Recovered/Resolved]
  - Rash [Recovered/Resolved]
